FAERS Safety Report 16267434 (Version 2)
Quarter: 2019Q3

REPORT INFORMATION
  Report Type: Spontaneous
  Country: DE (occurrence: DE)
  Receive Date: 20190502
  Receipt Date: 20190711
  Transmission Date: 20191004
  Serious: Yes (Hospitalization, Other)
  Sender: FDA-Public Use
  Company Number: DE-BRISTOL-MYERS SQUIBB COMPANY-BMS-2019-041678

PATIENT
  Age: 69 Year
  Sex: Male

DRUGS (4)
  1. NIVOLUMAB [Suspect]
     Active Substance: NIVOLUMAB
     Indication: PRODUCT USED FOR UNKNOWN INDICATION
     Dosage: UNK
     Route: 065
     Dates: start: 201801
  2. NIVOLUMAB [Suspect]
     Active Substance: NIVOLUMAB
     Indication: LIP NEOPLASM MALIGNANT STAGE UNSPECIFIED
     Dosage: 3 MILLIGRAM/KILOGRAM, Q2WK
     Route: 065
     Dates: start: 201604
  3. IPILIMUMAB [Suspect]
     Active Substance: IPILIMUMAB
     Indication: LIP NEOPLASM MALIGNANT STAGE UNSPECIFIED
     Dosage: 1 MILLIGRAM/KILOGRAM, ON DAY 1 FOLLOWING EVERY 42 DAYS
     Route: 065
     Dates: end: 201709
  4. NIVOLUMAB [Suspect]
     Active Substance: NIVOLUMAB
     Indication: PRODUCT USED FOR UNKNOWN INDICATION
     Dosage: 3 MILLIGRAM/KILOGRAM, ON DAYS 1,14,28
     Route: 065
     Dates: end: 201709

REACTIONS (4)
  - Stress cardiomyopathy [Recovered/Resolved]
  - Acute kidney injury [Recovered/Resolved]
  - Hypercalcaemia [Unknown]
  - Intentional product use issue [Unknown]
